FAERS Safety Report 13880132 (Version 1)
Quarter: 2017Q3

REPORT INFORMATION
  Report Type: Spontaneous
  Country: AU (occurrence: AU)
  Receive Date: 20170818
  Receipt Date: 20170818
  Transmission Date: 20171127
  Serious: Yes (Other)
  Sender: FDA-Public Use
  Company Number: AU-ABBVIE-17K-008-2072196-00

PATIENT
  Age: 45 Year
  Sex: Female

DRUGS (2)
  1. HUMIRA [Suspect]
     Active Substance: ADALIMUMAB
     Indication: ANKYLOSING SPONDYLITIS
     Route: 058
     Dates: start: 201512
  2. COVERSYL [Concomitant]
     Active Substance: PERINDOPRIL
     Indication: PRODUCT USED FOR UNKNOWN INDICATION

REACTIONS (9)
  - Ovarian cyst [Unknown]
  - Pericardial effusion [Recovered/Resolved]
  - Pericardial effusion [Unknown]
  - Pericardial effusion [Recovered/Resolved]
  - Rheumatoid factor increased [Unknown]
  - Back pain [Not Recovered/Not Resolved]
  - Lupus-like syndrome [Unknown]
  - Glomerular filtration rate abnormal [Unknown]
  - Antinuclear antibody positive [Unknown]

NARRATIVE: CASE EVENT DATE: 201604
